FAERS Safety Report 8844743 (Version 1)
Quarter: 2012Q4

REPORT INFORMATION
  Report Type: 
  Country: US (occurrence: US)
  Receive Date: 20121017
  Receipt Date: 20121017
  Transmission Date: 20130627
  Serious: No
  Sender: FDA-Public Use
  Company Number: US-PFIZER INC-2012252907

PATIENT

DRUGS (2)
  1. GLIPIZIDE [Suspect]
     Dosage: Unk
     Dates: end: 201207
  2. LANTUS [Suspect]
     Dosage: Unk
     Dates: end: 201207

REACTIONS (1)
  - Weight increased [Recovered/Resolved]
